FAERS Safety Report 10690285 (Version 1)
Quarter: 2015Q1

REPORT INFORMATION
  Report Type: Spontaneous
  Country: US (occurrence: None)
  Receive Date: 20150102
  Receipt Date: 20150102
  Transmission Date: 20150720
  Serious: Yes (Hospitalization)
  Sender: FDA-Public Use
  Company Number: None

PATIENT
  Age: 69 Year
  Sex: Male
  Weight: 84.3 kg

DRUGS (2)
  1. DOCETAXEL. [Suspect]
     Active Substance: DOCETAXEL
     Route: 042
     Dates: start: 20141201
  2. RADIATION [Suspect]
     Active Substance: RADIATION THERAPY
     Indication: OROPHARYNGEAL SQUAMOUS CELL CARCINOMA
     Dosage: 3600 CGY
     Dates: start: 20141201, end: 20141212

REACTIONS (2)
  - Pneumonia [None]
  - Lung infection [None]

NARRATIVE: CASE EVENT DATE: 20141228
